FAERS Safety Report 9342668 (Version 1)
Quarter: 2013Q2

REPORT INFORMATION
  Report Type: Spontaneous
  Country: US (occurrence: None)
  Receive Date: 20130607
  Receipt Date: 20130607
  Transmission Date: 20140414
  Serious: Yes (Hospitalization)
  Sender: FDA-Public Use
  Company Number: 2013050112

PATIENT
  Sex: Female

DRUGS (2)
  1. ACETAMINOPHEN, CHLORPHENIRAMINE MALEATE AND PHENYLEPHRINE HCL [Suspect]
     Indication: NASAL CONGESTION
     Dosage: 1 IN 1 D
     Route: 048
     Dates: start: 20130430, end: 20130430
  2. ACETAMINOPHEN, CHLORPHENIRAMINE MALEATE AND PHENYLEPHRINE HCL [Suspect]
     Indication: OROPHARYNGEAL PAIN
     Dosage: 1 IN 1 D
     Route: 048
     Dates: start: 20130430, end: 20130430

REACTIONS (3)
  - Headache [None]
  - Aneurysm [None]
  - Impaired driving ability [None]
